FAERS Safety Report 13886564 (Version 1)
Quarter: 2017Q3

REPORT INFORMATION
  Report Type: Spontaneous
  Country: TW (occurrence: TW)
  Receive Date: 20170821
  Receipt Date: 20170821
  Transmission Date: 20171127
  Serious: Yes (Death)
  Sender: FDA-Public Use
  Company Number: TW-PFIZER INC-2017360097

PATIENT
  Age: 40 Year
  Sex: Male

DRUGS (17)
  1. LAMIVUDINE. [Suspect]
     Active Substance: LAMIVUDINE
     Indication: ANTIRETROVIRAL THERAPY
     Dosage: UNK
     Dates: start: 199704
  2. ZALCITABINE [Suspect]
     Active Substance: ZALCITABINE
     Indication: ANTIRETROVIRAL THERAPY
     Dosage: UNK
     Dates: start: 199704
  3. ACICLOVIR [Concomitant]
     Active Substance: ACYCLOVIR
     Indication: OPHTHALMIC HERPES SIMPLEX
     Dosage: UNK
     Dates: start: 1996
  4. LAMIVUDINE. [Suspect]
     Active Substance: LAMIVUDINE
     Indication: HIV INFECTION
  5. SULFAMETHOXAZOLE/TRIMETHOPRIM [Suspect]
     Active Substance: SULFAMETHOXAZOLE\TRIMETHOPRIM
     Indication: PNEUMONIA
     Dosage: UNK
     Dates: start: 1996
  6. PYRAZINAMIDE. [Suspect]
     Active Substance: PYRAZINAMIDE
     Indication: HERPES SIMPLEX
     Dosage: UNK
     Dates: start: 1996
  7. CEFTRIAXONE. [Concomitant]
     Active Substance: CEFTRIAXONE
     Dosage: UNK
     Dates: start: 1996
  8. ISONIAZID. [Suspect]
     Active Substance: ISONIAZID
     Indication: HERPES SIMPLEX
     Dosage: UNK
     Dates: start: 1996
  9. GENTAMYCIN [Suspect]
     Active Substance: GENTAMICIN
     Dosage: UNK
  10. SAQUINAVIR [Suspect]
     Active Substance: SAQUINAVIR
     Indication: ANTIRETROVIRAL THERAPY
     Dosage: UNK
     Dates: start: 199704
  11. ZIDOVUDINE. [Concomitant]
     Active Substance: ZIDOVUDINE
     Dosage: UNK
     Dates: start: 199610
  12. ETHAMBUTOL [Suspect]
     Active Substance: ETHAMBUTOL HYDROCHLORIDE
     Indication: HERPES SIMPLEX
     Dosage: UNK
     Dates: start: 1996
  13. ZALCITABINE [Suspect]
     Active Substance: ZALCITABINE
     Indication: HIV INFECTION
  14. DIDANOSINE. [Concomitant]
     Active Substance: DIDANOSINE
     Dosage: UNK
     Dates: start: 1996, end: 199701
  15. SAQUINAVIR [Suspect]
     Active Substance: SAQUINAVIR
     Indication: HIV INFECTION
  16. CEPHAPIRIN [Suspect]
     Active Substance: CEPHAPIRIN SODIUM
     Dosage: UNK
  17. AMIKACIN [Concomitant]
     Active Substance: AMIKACIN
     Dosage: UNK
     Dates: start: 1996

REACTIONS (1)
  - Drug ineffective [Fatal]
